FAERS Safety Report 9148358 (Version 1)
Quarter: 2013Q1

REPORT INFORMATION
  Report Type: Spontaneous
  Country: US (occurrence: None)
  Receive Date: 20130228
  Receipt Date: 20130228
  Transmission Date: 20140127
  Serious: Yes (Other)
  Sender: FDA-Public Use
  Company Number: None

PATIENT
  Age: 40 Year
  Sex: Female
  Weight: 90.72 kg

DRUGS (3)
  1. NUVARING [Suspect]
     Indication: MENSTRUAL DISORDER
     Dosage: 0.120MG/0.015MG DAILY VAG
     Route: 067
     Dates: start: 20120904, end: 20130214
  2. Z-PACK [Concomitant]
  3. BIAXIN [Concomitant]

REACTIONS (2)
  - Menorrhagia [None]
  - Dysmenorrhoea [None]
